FAERS Safety Report 4763720-5 (Version None)
Quarter: 2005Q3

REPORT INFORMATION
  Report Type: 
  Country: None (occurrence: None)
  Receive Date: 20050908
  Receipt Date: 20050621
  Transmission Date: 20060218
  Serious: Yes (Hospitalization, Disabling)
  Sender: FDA-Public Use
  Company Number: US-ROCHE-408637

PATIENT
  Age: 21 Year
  Sex: Male
  Weight: 99.8 kg

DRUGS (2)
  1. ACCUTANE [Suspect]
     Indication: ACNE
     Route: 048
     Dates: start: 19950115, end: 19950615
  2. ACCUTANE [Suspect]
     Route: 048
     Dates: start: 19980915, end: 19981115

REACTIONS (28)
  - ABSCESS [None]
  - ANHEDONIA [None]
  - ANXIETY [None]
  - ASCITES [None]
  - BLOOD ALBUMIN DECREASED [None]
  - CLOSTRIDIAL INFECTION [None]
  - COLITIS [None]
  - COLITIS ULCERATIVE [None]
  - DYSPEPSIA [None]
  - FRACTURE [None]
  - GASTROINTESTINAL DISORDER [None]
  - GASTROOESOPHAGEAL REFLUX DISEASE [None]
  - GIARDIASIS [None]
  - HAEMATOCRIT DECREASED [None]
  - HAEMORRHOID INFECTION [None]
  - HEADACHE [None]
  - HYPERSENSITIVITY [None]
  - INFLAMMATORY BOWEL DISEASE [None]
  - INJURY [None]
  - INTESTINAL HAEMORRHAGE [None]
  - IRRITABLE BOWEL SYNDROME [None]
  - MUSCLE SPASMS [None]
  - PAIN [None]
  - PROCTITIS [None]
  - PSEUDOPOLYPOSIS [None]
  - RASH [None]
  - RECTAL HAEMORRHAGE [None]
  - WEIGHT DECREASED [None]
